FAERS Safety Report 6182672-7 (Version None)
Quarter: 2009Q2

REPORT INFORMATION
  Report Type: 
  Country: None (occurrence: None)
  Receive Date: 20090507
  Receipt Date: 20090429
  Transmission Date: 20091009
  Serious: Yes (Other)
  Sender: FDA-Public Use
  Company Number: A0782767A

PATIENT
  Age: 49 Year
  Sex: Male
  Weight: 60.9 kg

DRUGS (1)
  1. EPIVIR-HBV [Suspect]
     Indication: HEPATITIS B
     Dosage: 100MG UNKNOWN
     Route: 048

REACTIONS (5)
  - ASTHENIA [None]
  - HEPATITIS [None]
  - HYPOTONIA [None]
  - LIPOATROPHY [None]
  - WEIGHT DECREASED [None]
